FAERS Safety Report 20380000 (Version 2)
Quarter: 2022Q2

REPORT INFORMATION
  Report Type: Spontaneous
  Country: US (occurrence: US)
  Receive Date: 20220126
  Receipt Date: 20220413
  Transmission Date: 20220721
  Serious: Yes (Life-Threatening, Other)
  Sender: FDA-Public Use
  Company Number: US-ALLERGAN-2202831US

PATIENT
  Sex: Female
  Weight: 72.562 kg

DRUGS (1)
  1. VUITY [Suspect]
     Active Substance: PILOCARPINE HYDROCHLORIDE
     Indication: Product used for unknown indication
     Dosage: 2 GTT, QD
     Route: 047
     Dates: start: 20220119, end: 20220119

REACTIONS (5)
  - Blindness transient [Recovering/Resolving]
  - Vision blurred [Recovering/Resolving]
  - Impaired driving ability [Recovered/Resolved]
  - Facial pain [Recovered/Resolved]
  - Headache [Recovered/Resolved]

NARRATIVE: CASE EVENT DATE: 20220119
